FAERS Safety Report 9179090 (Version 1)
Quarter: 2012Q4

REPORT INFORMATION
  Report Type: 
  Country: US (occurrence: US)
  Receive Date: 20121029
  Receipt Date: 20121029
  Transmission Date: 20130627
  Serious: No
  Sender: FDA-Public Use
  Company Number: US-AMGEN-USASP2012054312

PATIENT
  Age: 23 Year
  Sex: Female
  Weight: 58.96 kg

DRUGS (3)
  1. ENBREL [Suspect]
     Indication: PRODUCT USED FOR UNKNOWN INDICATION
     Dosage: UNK
     Route: 058
  2. LOESTRIN [Concomitant]
     Dosage: 24 TABFE
  3. VITAMIN D /00107901/ [Concomitant]
     Dosage: 1000 unit, UNK

REACTIONS (1)
  - Pruritus generalised [Unknown]
